FAERS Safety Report 6316141-8 (Version None)
Quarter: 2009Q3

REPORT INFORMATION
  Report Type: 
  Country: None (occurrence: None)
  Receive Date: 20090819
  Receipt Date: 20090819
  Transmission Date: 20100115
  Serious: Yes (Death)
  Sender: FDA-Public Use
  Company Number: None

PATIENT
  Age: 81 Year
  Sex: Male
  Weight: 82.9 kg

DRUGS (11)
  1. GEMCITABINE [Suspect]
     Indication: BLADDER CANCER
     Dosage: 1000 MG/M2 DAYS 1,8 AND 15 MG/M**2 CYC IV
     Route: 042
     Dates: start: 20090727, end: 20090727
  2. CISPLATIN [Suspect]
     Dosage: 50 MG/M**2 CYC IV
     Route: 042
     Dates: start: 20090727, end: 20090727
  3. NORMALOL [Concomitant]
  4. ASPIRIN [Concomitant]
  5. INHIBACE [Concomitant]
  6. SETRON [Concomitant]
  7. TAGAMET [Concomitant]
  8. DEXAMETHASONE [Concomitant]
  9. EMEND [Concomitant]
  10. PRAMIN [Concomitant]
  11. MAGNESIUM [Concomitant]

REACTIONS (33)
  - BACTERIAL INFECTION [None]
  - BLOOD CREATININE INCREASED [None]
  - BLOOD CULTURE POSITIVE [None]
  - CARDIAC ARREST [None]
  - CARDIOMEGALY [None]
  - DILATATION ATRIAL [None]
  - DILATATION VENTRICULAR [None]
  - DYSPNOEA [None]
  - EJECTION FRACTION DECREASED [None]
  - GENERAL PHYSICAL HEALTH DETERIORATION [None]
  - HAEMATOCRIT DECREASED [None]
  - HAEMOGLOBIN DECREASED [None]
  - LOSS OF CONSCIOUSNESS [None]
  - LUNG NEOPLASM [None]
  - METASTASIS [None]
  - MITRAL VALVE INCOMPETENCE [None]
  - MYALGIA [None]
  - MYDRIASIS [None]
  - NEUTROPENIC INFECTION [None]
  - NEUTROPHIL PERCENTAGE INCREASED [None]
  - NO THERAPEUTIC RESPONSE [None]
  - OSTEOARTHRITIS [None]
  - OXYGEN SATURATION DECREASED [None]
  - PLATELET COUNT DECREASED [None]
  - PLEURAL EFFUSION [None]
  - PULMONARY EMBOLISM [None]
  - PULMONARY HYPERTENSION [None]
  - RED BLOOD CELL COUNT DECREASED [None]
  - SHOCK [None]
  - SINUS TACHYCARDIA [None]
  - TRICUSPID VALVE INCOMPETENCE [None]
  - VENTRICULAR HYPOKINESIA [None]
  - WHITE BLOOD CELL COUNT DECREASED [None]
